FAERS Safety Report 24222974 (Version 1)
Quarter: 2024Q3

REPORT INFORMATION
  Report Type: Spontaneous
  Country: US (occurrence: None)
  Receive Date: 20240816
  Receipt Date: 20240816
  Transmission Date: 20241017
  Serious: Yes (unspecified)
  Sender: Public
  Company Number: None

PATIENT
  Age: 76 Year
  Sex: Female

DRUGS (1)
  1. POMALYST [Suspect]
     Active Substance: POMALIDOMIDE
     Indication: Plasma cell myeloma
     Dosage: 2MG QD ORAL?
     Route: 048
     Dates: start: 20240625, end: 20240812

REACTIONS (5)
  - Therapy cessation [None]
  - Rash [None]
  - Muscle spasms [None]
  - Alopecia [None]
  - Nail disorder [None]

NARRATIVE: CASE EVENT DATE: 20240812
